FAERS Safety Report 5945862-1 (Version None)
Quarter: 2008Q4

REPORT INFORMATION
  Report Type: 
  Country: None (occurrence: None)
  Receive Date: 20081106
  Receipt Date: 20081018
  Transmission Date: 20090506
  Serious: Yes (Hospitalization)
  Sender: FDA-Public Use
  Company Number: 2008-01049FE

PATIENT
  Age: 4 Year
  Sex: Male

DRUGS (5)
  1. MINIRIN [Suspect]
     Indication: DIABETES INSIPIDUS
     Dosage: 10 MCG PRN
     Dates: start: 20031106, end: 20031118
  2. MINIRIN [Suspect]
     Indication: DIABETES INSIPIDUS
     Dosage: 10 MCG PRN
     Dates: start: 20050815, end: 20050820
  3. PHENYTOIN [Concomitant]
  4. PREDNISOLONE [Concomitant]
  5. LEVOTHYROXINE SODIUM [Concomitant]

REACTIONS (5)
  - ASCITES [None]
  - BUDD-CHIARI SYNDROME [None]
  - HEPATOMEGALY [None]
  - OLIGURIA [None]
  - VENA CAVA THROMBOSIS [None]
